FAERS Safety Report 8723606 (Version 2)
Quarter: 2013Q2

REPORT INFORMATION
  Report Type: Spontaneous
  Country: US (occurrence: US)
  Receive Date: 20120814
  Receipt Date: 20130402
  Transmission Date: 20140414
  Serious: Yes (Hospitalization)
  Sender: FDA-Public Use
  Company Number: US-009507513-1208USA003372

PATIENT
  Age: 40 Year
  Sex: Male

DRUGS (5)
  1. ZOCOR [Suspect]
     Dosage: UNK, QD
     Route: 048
  2. LISINOPRIL [Concomitant]
     Route: 048
  3. AMLODIPINE [Concomitant]
     Route: 048
  4. ATENOLOL [Concomitant]
  5. GLIPIZIDE [Concomitant]

REACTIONS (1)
  - Interstitial lung disease [Recovering/Resolving]
